FAERS Safety Report 15533635 (Version 3)
Quarter: 2019Q1

REPORT INFORMATION
  Report Type: Report from Study
  Country: IT (occurrence: IT)
  Receive Date: 20181019
  Receipt Date: 20190102
  Transmission Date: 20190417
  Serious: Yes (Death, Hospitalization, Disabling, Other)
  Sender: FDA-Public Use
  Company Number: IT-INCYTE CORPORATION-2018IN010220

PATIENT

DRUGS (4)
  1. CARDIRENE [Concomitant]
     Active Substance: ASPIRIN DL-LYSINE
     Indication: PROPHYLAXIS
     Dosage: 160 MG, UNK
     Route: 065
     Dates: start: 201703, end: 20180925
  2. NEBIVOLOL. [Concomitant]
     Active Substance: NEBIVOLOL
     Indication: HYPERTENSION
     Dosage: 5 MG, UNK
     Route: 065
     Dates: start: 201703, end: 20180925
  3. ALIFLUS DISKUS [Concomitant]
     Active Substance: FLUTICASONE PROPIONATE\SALMETEROL XINAFOATE
     Indication: ASTHMA
     Dosage: 50/250MG
     Route: 065
     Dates: start: 201703, end: 20180925
  4. JAKAVI [Suspect]
     Active Substance: RUXOLITINIB
     Indication: MYELOFIBROSIS
     Dosage: 40 MG, UNK
     Route: 048
     Dates: start: 20180327, end: 20180924

REACTIONS (6)
  - Skull fracture [Unknown]
  - Intraventricular haemorrhage [Unknown]
  - Subarachnoid haemorrhage [Unknown]
  - Cerebral haemorrhage [Fatal]
  - Haematoma [Unknown]
  - Fall [Fatal]

NARRATIVE: CASE EVENT DATE: 20180925
